FAERS Safety Report 9838653 (Version 2)
Quarter: 2014Q1

REPORT INFORMATION
  Report Type: Spontaneous
  Country: US (occurrence: US)
  Receive Date: 20140123
  Receipt Date: 20140320
  Transmission Date: 20141002
  Serious: Yes (Hospitalization, Other)
  Sender: FDA-Public Use
  Company Number: US-CELGENEUS-163-21880-14012194

PATIENT
  Sex: Female

DRUGS (10)
  1. REVLIMID [Suspect]
     Indication: 5Q MINUS SYNDROME
     Dosage: 5 MILLIGRAM
     Route: 048
     Dates: start: 201110, end: 201307
  2. REVLIMID [Suspect]
     Route: 048
     Dates: start: 201312
  3. LEVOTHYROXINE SODIUM [Concomitant]
     Indication: HYPOTHYROIDISM
     Dosage: 75 MICROGRAM
     Route: 048
     Dates: start: 20120619
  4. LEVOTHYROXINE SODIUM [Concomitant]
     Indication: HYPERTENSION
  5. GLUCOSAMINE HCL [Concomitant]
     Indication: PRODUCT USED FOR UNKNOWN INDICATION
     Route: 065
  6. COUMADIN [Concomitant]
     Indication: DEEP VEIN THROMBOSIS
     Route: 065
     Dates: start: 20110613, end: 2011
  7. COUMADIN [Concomitant]
     Indication: PULMONARY EMBOLISM
     Route: 065
  8. TAMOXIFEN [Concomitant]
     Indication: BREAST CANCER
     Route: 065
  9. MIRTAZAPINE [Concomitant]
     Indication: HYPOTHYROIDISM
     Route: 048
  10. REMERON [Concomitant]
     Indication: PRODUCT USED FOR UNKNOWN INDICATION
     Route: 065
     Dates: start: 20130702

REACTIONS (6)
  - Aortic aneurysm [Unknown]
  - Deep vein thrombosis [Unknown]
  - Pulmonary embolism [Unknown]
  - Cervical vertebral fracture [Recovering/Resolving]
  - Road traffic accident [Recovering/Resolving]
  - Anaemia [Not Recovered/Not Resolved]
